FAERS Safety Report 9636591 (Version 2)
Quarter: 2014Q1

REPORT INFORMATION
  Report Type: Spontaneous
  Country: US (occurrence: US)
  Receive Date: 20131021
  Receipt Date: 20140220
  Transmission Date: 20141002
  Serious: Yes (Death, Life-Threatening, Hospitalization, Disabling, Other)
  Sender: FDA-Public Use
  Company Number: US-009507513-1310USA008744

PATIENT
  Sex: Female
  Weight: 109.75 kg

DRUGS (8)
  1. JANUVIA [Suspect]
     Indication: TYPE 2 DIABETES MELLITUS
     Dosage: 100 MG, QD
     Route: 048
     Dates: start: 20080602, end: 20100605
  2. JANUVIA [Suspect]
     Dosage: 100 MG QD
     Route: 048
     Dates: start: 20100609
  3. BYETTA [Suspect]
     Indication: TYPE 2 DIABETES MELLITUS
     Dosage: 5 MICROGRAM, BID
     Dates: start: 20061111, end: 20061214
  4. LANTUS [Concomitant]
     Indication: TYPE 2 DIABETES MELLITUS
     Dosage: 25 IU, QD
     Route: 058
  5. GLUMETZA [Concomitant]
     Indication: TYPE 2 DIABETES MELLITUS
     Dosage: 1000 MG, QD
     Route: 048
  6. ACTOS [Concomitant]
     Indication: TYPE 2 DIABETES MELLITUS
  7. AVANDIA [Concomitant]
     Indication: TYPE 2 DIABETES MELLITUS
  8. METFORMIN [Concomitant]
     Indication: TYPE 2 DIABETES MELLITUS

REACTIONS (11)
  - Pancreatic carcinoma [Fatal]
  - Atrial tachycardia [Recovered/Resolved]
  - Hypertension [Unknown]
  - Gastrooesophageal reflux disease [Unknown]
  - Atrial tachycardia [Recovered/Resolved]
  - Hypothyroidism [Unknown]
  - Gout [Unknown]
  - Sleep apnoea syndrome [Unknown]
  - Treatment noncompliance [Unknown]
  - Heart valve incompetence [Unknown]
  - Arthralgia [Unknown]
